FAERS Safety Report 5739747-3 (Version None)
Quarter: 2008Q2

REPORT INFORMATION
  Report Type: 
  Country: None (occurrence: None)
  Receive Date: 20080512
  Receipt Date: 20080512
  Transmission Date: 20081010
  Serious: Yes (Life-Threatening, Hospitalization, Disabling)
  Sender: FDA-Public Use
  Company Number: None

PATIENT
  Age: 63 Year
  Sex: Female
  Weight: 81.6475 kg

DRUGS (1)
  1. VISICOL [Suspect]
     Indication: COLONOSCOPY
     Dosage: AS PRESCRIBED FOR PREP PO
     Route: 048
     Dates: start: 20080417, end: 20080418

REACTIONS (5)
  - ERYTHEMA [None]
  - LIP SWELLING [None]
  - LOCAL SWELLING [None]
  - PRURITUS [None]
  - RASH [None]
